FAERS Safety Report 19046834 (Version 1)
Quarter: 2021Q1

REPORT INFORMATION
  Report Type: Spontaneous
  Country: AU (occurrence: AU)
  Receive Date: 20210323
  Receipt Date: 20210323
  Transmission Date: 20210420
  Serious: Yes (Other)
  Sender: FDA-Public Use
  Company Number: AU-ALVOGEN-2021-ALVOGEN-116771

PATIENT
  Sex: Female

DRUGS (4)
  1. KETAMINE [Suspect]
     Active Substance: KETAMINE
     Indication: BACK PAIN
     Dates: start: 201410
  2. CLONIDINE. [Concomitant]
     Active Substance: CLONIDINE
     Indication: PRODUCT USED FOR UNKNOWN INDICATION
     Dosage: TWICE A DAY, TOTAL DOSES OF 100 MCG/DAY
     Dates: start: 201410
  3. OXYCODONE [Suspect]
     Active Substance: OXYCODONE
     Indication: DRUG USE DISORDER
     Dosage: PATCH
     Dates: start: 2014, end: 20141001
  4. BUPRENORPHINE. [Suspect]
     Active Substance: BUPRENORPHINE
     Indication: DRUG USE DISORDER
     Dosage: PATCH
     Dates: start: 201410

REACTIONS (4)
  - Drug withdrawal syndrome [Recovered/Resolved]
  - Stress cardiomyopathy [Recovered/Resolved]
  - Drug intolerance [Unknown]
  - Skin irritation [Unknown]

NARRATIVE: CASE EVENT DATE: 2014
